FAERS Safety Report 12407154 (Version 2)
Quarter: 2016Q4

REPORT INFORMATION
  Report Type: Spontaneous
  Country: US (occurrence: US)
  Receive Date: 20160526
  Receipt Date: 20161107
  Transmission Date: 20170207
  Serious: No
  Sender: FDA-Public Use
  Company Number: US-PFIZER INC-2016261319

PATIENT
  Age: 51 Year
  Sex: Female

DRUGS (2)
  1. FASLODEX [Concomitant]
     Active Substance: FULVESTRANT
     Dosage: UNK
  2. IBRANCE [Suspect]
     Active Substance: PALBOCICLIB
     Dosage: 75 MG, CYCLIC (QD 21 DAYS ON/7 DAYS OFF)
     Route: 048
     Dates: start: 20160503

REACTIONS (3)
  - Arthralgia [Unknown]
  - Nausea [Unknown]
  - Headache [Unknown]
